FAERS Safety Report 7791459-0 (Version None)
Quarter: 2011Q4

REPORT INFORMATION
  Report Type: 
  Country: None (occurrence: None)
  Receive Date: 20111003
  Receipt Date: 20110927
  Transmission Date: 20120403
  Serious: Yes (Other)
  Sender: FDA-Public Use
  Company Number: US-BAYER-2011-011020

PATIENT
  Sex: Male

DRUGS (6)
  1. LACTULOSE [Concomitant]
  2. NEXAVAR [Suspect]
     Dosage: 200 MG, BID
     Route: 048
     Dates: start: 20100827
  3. OXYCODONE HCL [Concomitant]
     Dosage: 5 MG, UNK
     Dates: start: 20110715
  4. FUROSEMIDE [Concomitant]
     Dosage: UNK
     Dates: start: 20110614
  5. PROCHLORPERAZINE [Concomitant]
     Dosage: 188 MG, QD
     Dates: start: 20101001
  6. SPIRONOLACTONE [Concomitant]
     Dosage: UNK
     Dates: start: 20110927

REACTIONS (9)
  - HAEMORRHAGE [None]
  - ABDOMINAL PAIN UPPER [None]
  - OEDEMA PERIPHERAL [None]
  - NAUSEA [None]
  - CONTUSION [None]
  - FATIGUE [None]
  - DIARRHOEA [None]
  - HEADACHE [None]
  - DYSPNOEA [None]
